FAERS Safety Report 4283243-X (Version None)
Quarter: 2004Q1

REPORT INFORMATION
  Report Type: 
  Country: None (occurrence: None)
  Receive Date: 20040129
  Receipt Date: 20040126
  Transmission Date: 20041129
  Serious: Yes (Death, Life-Threatening)
  Sender: FDA-Public Use
  Company Number: 200410221GDS

PATIENT
  Age: 83 Year
  Sex: Female

DRUGS (6)
  1. AVELOX [Suspect]
     Indication: PNEUMONIA
     Dosage: 400 MG, TOTAL DAILY, INTRAVENOUS
     Route: 042
     Dates: start: 20040108, end: 20040110
  2. AVELOX [Suspect]
     Indication: PNEUMONIA
     Dosage: 400 MG, TOTAL DAILY, ORAL
     Route: 048
     Dates: start: 20040111, end: 20040114
  3. OLIVIN [Concomitant]
  4. SERETIDE ^ALLEN + HANBURYS LTD^ [Concomitant]
  5. TEOTARD [Concomitant]
  6. BERODUAL [Concomitant]

REACTIONS (6)
  - ANURIA [None]
  - CEREBROVASCULAR DISORDER [None]
  - COMA [None]
  - DEHYDRATION [None]
  - RENAL FAILURE ACUTE [None]
  - URINARY TRACT INFECTION [None]
